FAERS Safety Report 6168529-6 (Version None)
Quarter: 2009Q2

REPORT INFORMATION
  Report Type: 
  Country: None (occurrence: None)
  Receive Date: 20090427
  Receipt Date: 20090416
  Transmission Date: 20091009
  Serious: Yes (Other)
  Sender: FDA-Public Use
  Company Number: B0570809A

PATIENT
  Sex: Male

DRUGS (2)
  1. ONDANSETRON HCL [Suspect]
     Route: 065
     Dates: start: 20090401, end: 20090401
  2. SOLU-MEDROL [Suspect]
     Route: 065
     Dates: start: 20090401, end: 20090401

REACTIONS (6)
  - ABDOMINAL PAIN [None]
  - BACK PAIN [None]
  - CHROMATURIA [None]
  - HAEMOLYTIC ANAEMIA [None]
  - PIGMENTATION DISORDER [None]
  - SHOCK [None]
